FAERS Safety Report 10523889 (Version 5)
Quarter: 2017Q3

REPORT INFORMATION
  Report Type: Report from Study
  Country: US (occurrence: US)
  Receive Date: 20141017
  Receipt Date: 20170913
  Transmission Date: 20171127
  Serious: Yes (Hospitalization)
  Sender: FDA-Public Use
  Company Number: US-ROCHE-1475017

PATIENT
  Age: 71 Year
  Sex: Female
  Weight: 80.3 kg

DRUGS (10)
  1. LEVOTHYROXINE. [Concomitant]
     Active Substance: LEVOTHYROXINE
     Indication: HYPOTHYROIDISM
     Route: 048
  2. VALIUM [Suspect]
     Active Substance: DIAZEPAM
     Indication: ANXIETY
     Route: 048
     Dates: end: 20140818
  3. NEURONTIN [Concomitant]
     Active Substance: GABAPENTIN
     Route: 048
  4. SEROQUEL [Concomitant]
     Active Substance: QUETIAPINE FUMARATE
     Dosage: EVERY BEDTIME (QHS)
     Route: 048
  5. EFFEXOR [Interacting]
     Active Substance: VENLAFAXINE HYDROCHLORIDE
     Route: 065
  6. IDELALISIB [Interacting]
     Active Substance: IDELALISIB
     Indication: B-CELL LYMPHOMA RECURRENT
     Route: 048
     Dates: start: 20140808, end: 20140818
  7. EFFEXOR [Interacting]
     Active Substance: VENLAFAXINE HYDROCHLORIDE
     Indication: ANXIETY
     Route: 048
  8. IDELALISIB [Interacting]
     Active Substance: IDELALISIB
     Dosage: RE-STARTED
     Route: 048
     Dates: start: 20140915
  9. VALIUM [Interacting]
     Active Substance: DIAZEPAM
     Dosage: DAILY USE
     Route: 048
  10. WELLBUTRIN [Concomitant]
     Active Substance: BUPROPION HYDROCHLORIDE
     Route: 048

REACTIONS (5)
  - Drug interaction [Unknown]
  - Fall [Unknown]
  - Respiratory acidosis [Recovered/Resolved]
  - Respiratory failure [Recovered/Resolved]
  - Encephalopathy [Recovered/Resolved]

NARRATIVE: CASE EVENT DATE: 20140818
